FAERS Safety Report 4988996-0 (Version None)
Quarter: 2006Q1

REPORT INFORMATION
  Report Type: 
  Country: None (occurrence: None)
  Receive Date: 20060314
  Receipt Date: 20050817
  Transmission Date: 20060701
  Serious: Yes (Other)
  Sender: FDA-Public Use
  Company Number: 200513331BCC

PATIENT
  Sex: Male

DRUGS (1)
  1. ALEVE [Suspect]
     Dosage: ORAL
     Route: 048

REACTIONS (1)
  - BLOOD URINE PRESENT [None]
